FAERS Safety Report 19616053 (Version 1)
Quarter: 2021Q3

REPORT INFORMATION
  Report Type: Report from Study
  Country: GR (occurrence: GR)
  Receive Date: 20210727
  Receipt Date: 20210727
  Transmission Date: 20211014
  Serious: Yes (Hospitalization)
  Sender: FDA-Public Use
  Company Number: GR-ELI_LILLY_AND_COMPANY-GR202104009157

PATIENT
  Age: 53 Year
  Sex: Female

DRUGS (6)
  1. DIUREN [FUROSEMIDE] [Concomitant]
     Indication: CALCIUM DEFICIENCY
     Dosage: 1.5 DOSAGE FORM, DAILY
     Route: 048
  2. VITAMIN D NOS [Concomitant]
     Active Substance: VITAMIN D NOS
     Indication: PRODUCT USED FOR UNKNOWN INDICATION
     Dosage: 1 DOSAGE FORM, OTHER (1?2 TIMES PER WEEK)
     Route: 048
  3. FORSTEO [Suspect]
     Active Substance: TERIPARATIDE
     Indication: OSTEOPOROSIS
     Dosage: 20 UG, DAILY
     Route: 058
     Dates: start: 20191206
  4. JANUMET [Concomitant]
     Active Substance: METFORMIN HYDROCHLORIDE\SITAGLIPTIN PHOSPHATE
     Indication: TYPE 2 DIABETES MELLITUS
     Dosage: 1.5 DOSAGE FORM, DAILY
     Route: 048
  5. NEXIUM [Concomitant]
     Active Substance: ESOMEPRAZOLE MAGNESIUM
     Indication: CHRONIC GASTRITIS
     Dosage: 1 DOSAGE FORM, DAILY
     Route: 048
  6. FORSTEO [Suspect]
     Active Substance: TERIPARATIDE
     Dosage: 20 UG, DAILY
     Route: 058
     Dates: end: 20210616

REACTIONS (7)
  - Pain [Recovered/Resolved]
  - Blood magnesium decreased [Unknown]
  - Renal disorder [Unknown]
  - Blood uric acid increased [Unknown]
  - Dyspnoea [Recovered/Resolved]
  - Nephrolithiasis [Unknown]
  - Citric acid urine decreased [Unknown]

NARRATIVE: CASE EVENT DATE: 202102
